FAERS Safety Report 9540883 (Version 1)
Quarter: 2013Q3

REPORT INFORMATION
  Report Type: Spontaneous
  Country: US (occurrence: US)
  Receive Date: 20130921
  Receipt Date: 20130921
  Transmission Date: 20140515
  Serious: No
  Sender: FDA-Public Use
  Company Number: US-B.I. PHARMACEUTICALS,INC./RIDGEFIELD-2013-BI-28828BP

PATIENT
  Age: 64 Year
  Sex: Female
  Weight: 55 kg

DRUGS (1)
  1. SPIRIVA [Suspect]
     Indication: CHRONIC OBSTRUCTIVE PULMONARY DISEASE
     Dosage: 72 MCG
     Route: 055
     Dates: start: 2011

REACTIONS (2)
  - Drug prescribing error [Not Recovered/Not Resolved]
  - Incorrect route of drug administration [Recovered/Resolved]
